FAERS Safety Report 9670922 (Version 4)
Quarter: 2013Q4

REPORT INFORMATION
  Report Type: Spontaneous
  Country: GB (occurrence: GB)
  Receive Date: 20131106
  Receipt Date: 20131213
  Transmission Date: 20140711
  Serious: Yes (Death, Hospitalization)
  Sender: FDA-Public Use
  Company Number: PHFR2013GB006256

PATIENT
  Age: 63 Year
  Sex: Female

DRUGS (2)
  1. CLOZARIL [Suspect]
     Indication: SCHIZOPHRENIA
     Dosage: UNK UKN, UNK
     Route: 048
     Dates: start: 20100414
  2. CLOZARIL [Suspect]
     Dosage: 250 MG, UNK

REACTIONS (5)
  - Death [Fatal]
  - Fall [Unknown]
  - Dyspnoea [Unknown]
  - Urinary tract infection [Unknown]
  - Neutrophil count increased [Unknown]
